FAERS Safety Report 8211130-0 (Version None)
Quarter: 2012Q1

REPORT INFORMATION
  Report Type: 
  Country: None (occurrence: None)
  Receive Date: 20120315
  Receipt Date: 20120305
  Transmission Date: 20120608
  Serious: Yes (Hospitalization)
  Sender: FDA-Public Use
  Company Number: US-SANOFI-AVENTIS-2012SA015340

PATIENT
  Sex: Male

DRUGS (12)
  1. ALL OTHER THERAPEUTIC PRODUCTS [Concomitant]
  2. SIMVASTATIN [Concomitant]
  3. CALCIUM ACETATE [Concomitant]
  4. FUROSEMIDE [Concomitant]
  5. METOPROLOL SUCCINATE [Concomitant]
  6. LANTUS [Suspect]
     Indication: TYPE 2 DIABETES MELLITUS
     Dosage: DOSE:25 UNIT(S)
     Route: 058
     Dates: start: 20100101
  7. HYDRALAZINE HCL [Concomitant]
  8. TAMSULOSIN HCL [Concomitant]
     Dosage: 1 TABLET DAILY AS NEEDED
  9. SOLOSTAR [Suspect]
     Indication: TYPE 2 DIABETES MELLITUS
     Dates: start: 20100101
  10. METOLAZONE [Concomitant]
  11. PLAVIX [Concomitant]
  12. IRON [Concomitant]
     Dosage: 2 IN THE MORNING AND ONE AT NIGHT

REACTIONS (7)
  - INCREASED UPPER AIRWAY SECRETION [None]
  - OEDEMA PERIPHERAL [None]
  - BRONCHITIS [None]
  - HAEMORRHAGE [None]
  - RENAL FAILURE [None]
  - CONDITION AGGRAVATED [None]
  - CARDIAC FAILURE CONGESTIVE [None]
